FAERS Safety Report 13404895 (Version 1)
Quarter: 2017Q2

REPORT INFORMATION
  Report Type: Spontaneous
  Country: IT (occurrence: IT)
  Receive Date: 20170405
  Receipt Date: 20170405
  Transmission Date: 20170830
  Serious: Yes (Other)
  Sender: FDA-Public Use
  Company Number: IT-JNJFOC-20170334174

PATIENT
  Age: 61 Year
  Sex: Female

DRUGS (2)
  1. HALOPERIDOL. [Suspect]
     Active Substance: HALOPERIDOL
     Indication: DELIRIUM
     Route: 065
     Dates: end: 20130313
  2. CHLORPROMAZINE. [Suspect]
     Active Substance: CHLORPROMAZINE
     Indication: DELIRIUM
     Route: 065

REACTIONS (4)
  - Product use in unapproved indication [Unknown]
  - Electrocardiogram change [Recovered/Resolved]
  - Off label use [Unknown]
  - Ventricular hypertrophy [Unknown]
